FAERS Safety Report 9917160 (Version 1)
Quarter: 2014Q1

REPORT INFORMATION
  Report Type: Spontaneous
  Country: US (occurrence: US)
  Receive Date: 20140221
  Receipt Date: 20140221
  Transmission Date: 20141002
  Serious: Yes (Hospitalization, Other)
  Sender: FDA-Public Use
  Company Number: US-ELI_LILLY_AND_COMPANY-US201402005831

PATIENT
  Sex: Female

DRUGS (3)
  1. HUMALOG LISPRO [Suspect]
     Indication: TYPE 2 DIABETES MELLITUS
     Dosage: UNK, TID
     Route: 065
  2. HUMALOG LISPRO [Suspect]
     Dosage: UNK, TID
  3. LANTUS [Concomitant]

REACTIONS (4)
  - Ketoacidosis [Unknown]
  - Malaise [Unknown]
  - Drug dose omission [Unknown]
  - Incorrect dose administered [Unknown]
